FAERS Safety Report 9288329 (Version 1)
Quarter: 2013Q2

REPORT INFORMATION
  Report Type: Spontaneous
  Country: BR (occurrence: BR)
  Receive Date: 20130514
  Receipt Date: 20130514
  Transmission Date: 20140414
  Serious: Yes (Hospitalization)
  Sender: FDA-Public Use
  Company Number: BR-PFIZER INC-2013145271

PATIENT
  Age: 57 Year
  Sex: Female

DRUGS (2)
  1. FRONTAL XR [Suspect]
     Indication: PANIC DISORDER
     Dosage: ONCE A DAY
     Route: 048
     Dates: start: 2011
  2. LORAX [Suspect]
     Indication: PANIC DISORDER
     Dosage: TWICE A DAY
     Dates: start: 2011

REACTIONS (2)
  - Viral infection [Unknown]
  - Off label use [Not Recovered/Not Resolved]
